FAERS Safety Report 6705968-6 (Version None)
Quarter: 2010Q2

REPORT INFORMATION
  Report Type: 
  Country: None (occurrence: None)
  Receive Date: 20100503
  Receipt Date: 20100428
  Transmission Date: 20101027
  Serious: Yes (Hospitalization)
  Sender: FDA-Public Use
  Company Number: CN-SANOFI-AVENTIS-2010SA024641

PATIENT
  Age: 33 Year
  Sex: Male

DRUGS (4)
  1. SOLOSTAR [Suspect]
     Dates: start: 20070101, end: 20100428
  2. LANTUS [Suspect]
     Indication: DIABETES MELLITUS
     Route: 058
     Dates: start: 20070101, end: 20100428
  3. NOVORAPID [Concomitant]
     Indication: DIABETES MELLITUS
     Dosage: AT NOON
     Route: 058
  4. NOVORAPID [Concomitant]
     Dosage: AT NOON
     Route: 058

REACTIONS (2)
  - HYPERGLYCAEMIA [None]
  - PRODUCT QUALITY ISSUE [None]
